FAERS Safety Report 9172571 (Version 1)
Quarter: 2012Q4

REPORT INFORMATION
  Report Type: 
  Country: JP (occurrence: JP)
  Receive Date: 20120911
  Receipt Date: 20120911
  Transmission Date: 20130627
  Serious: Yes (Other)
  Sender: FDA-Public Use
  Company Number: JP-AMGEN-JPNCT2012057465

PATIENT
  Age: 59 Year
  Sex: Female
  Weight: 58 kg

DRUGS (14)
  1. ROMIPLOSTIM - KHK [Suspect]
     Indication: IDIOPATHIC THROMBOCYTOPENIC PURPURA
     Dosage: 9 UNK, UNK
     Route: 058
     Dates: start: 20120220
  2. SALIGREN [Concomitant]
     Indication: SJOGREN^S SYNDROME
     Dosage: Dosage is uncertain.
     Route: 048
  3. REZALTAS [Concomitant]
     Indication: HYPERTENSION
     Dosage: Dosage is uncertain.
     Route: 048
  4. CARDENALIN [Concomitant]
     Indication: HYPERTENSION
     Dosage: Dosage is uncertain.
     Route: 048
  5. TENORMIN [Concomitant]
     Indication: HYPERTENSION
     Dosage: Dosage is uncertain.
     Route: 048
  6. NEWTOLIDE [Concomitant]
     Indication: HYPERTENSION
     Dosage: Dosage is uncertain.
     Route: 048
  7. NOVORAPID [Concomitant]
     Indication: DIABETES MELLITUS
     Dosage: Dosage is uncertain.
     Route: 065
  8. URSO [Concomitant]
     Indication: CHRONIC HEPATITIS
     Dosage: Dosage is uncertain.
     Route: 048
  9. GLYCYRON [Concomitant]
     Indication: CHRONIC HEPATITIS
     Dosage: Dosage is uncertain.
     Route: 065
  10. METHYCOBAL [Concomitant]
     Indication: DIABETES MELLITUS
     Dosage: Dosage is uncertain.
     Route: 065
  11. GASTER [Concomitant]
     Indication: GASTRITIS
     Dosage: Dosage is uncertain.
     Route: 048
  12. FOSAMAC [Concomitant]
     Indication: OSTEOPOROSIS
     Dosage: Dosage is uncertain.
     Route: 048
  13. ZYLORIC [Concomitant]
     Indication: HYPERURICAEMIA
     Dosage: Dosage is uncertain.
     Route: 048
  14. OLMETEC [Concomitant]
     Indication: GASTRITIS
     Dosage: Dosage is uncertain.
     Route: 048

REACTIONS (1)
  - Interstitial lung disease [Recovering/Resolving]
